FAERS Safety Report 9721929 (Version 1)
Quarter: 2013Q4

REPORT INFORMATION
  Report Type: Spontaneous
  Country: US (occurrence: US)
  Receive Date: 20131202
  Receipt Date: 20131202
  Transmission Date: 20140711
  Serious: No
  Sender: FDA-Public Use
  Company Number: US-009507513-1311USA010739

PATIENT
  Age: 74 Year
  Sex: Female

DRUGS (2)
  1. JANUMET XR [Suspect]
     Indication: TYPE 2 DIABETES MELLITUS
     Dosage: 100/1000 MCG, QD
     Route: 048
     Dates: start: 20131114
  2. JANUVIA [Suspect]
     Dosage: UNK UNK, QPM
     Route: 048

REACTIONS (2)
  - Blood glucose fluctuation [Not Recovered/Not Resolved]
  - Blood glucose increased [Not Recovered/Not Resolved]
